FAERS Safety Report 11095709 (Version 2)
Quarter: 2015Q2

REPORT INFORMATION
  Report Type: Report from Study
  Country: US (occurrence: US)
  Receive Date: 20150507
  Receipt Date: 20150518
  Transmission Date: 20150821
  Serious: No
  Sender: FDA-Public Use
  Company Number: US-ASTRAZENECA-2015SE41222

PATIENT
  Age: 598 Month
  Sex: Female
  Weight: 68 kg

DRUGS (4)
  1. ALBUTEROL SULFATE. [Concomitant]
     Active Substance: ALBUTEROL SULFATE
     Indication: ASTHMA
     Dosage: EVERY COUPLE IF DAYS
     Route: 055
  2. PROAIR HFA [Concomitant]
     Active Substance: ALBUTEROL SULFATE
     Indication: ASTHMA
     Dosage: EVERY FOUR HOURS
     Route: 055
  3. SYMBICORT [Suspect]
     Active Substance: BUDESONIDE\FORMOTEROL FUMARATE DIHYDRATE
     Indication: ASTHMA
     Dosage: 160/4.5 MCG 2 PUFFS IN THE MORNING AND 2 PUFFS IN THE EVENING, TWO TIMES A DAY
     Route: 055
     Dates: start: 201501
  4. ADVAIR HFA [Suspect]
     Active Substance: FLUTICASONE PROPIONATE\SALMETEROL XINAFOATE
     Indication: ASTHMA
     Dosage: 250\50, 2 DF, BID
     Route: 055
     Dates: start: 201501

REACTIONS (5)
  - Intentional product misuse [Unknown]
  - Headache [Unknown]
  - Dyspnoea [Unknown]
  - Throat irritation [Unknown]
  - Neck pain [Unknown]

NARRATIVE: CASE EVENT DATE: 201502
